FAERS Safety Report 18849411 (Version 9)
Quarter: 2022Q1

REPORT INFORMATION
  Report Type: Report from Study
  Country: US (occurrence: US)
  Receive Date: 20210205
  Receipt Date: 20220112
  Transmission Date: 20220423
  Serious: Yes (Other)
  Sender: FDA-Public Use
  Company Number: US-NOVARTISPH-NVSC2021US026496

PATIENT
  Age: 70 Year
  Sex: Male

DRUGS (7)
  1. BEOVU [Suspect]
     Active Substance: BROLUCIZUMAB-DBLL
     Indication: Neovascular age-related macular degeneration
     Dosage: UNK
     Route: 047
     Dates: start: 20210414
  2. BEOVU [Suspect]
     Active Substance: BROLUCIZUMAB-DBLL
     Dosage: UNK (EVERY 6 WEEKS)
     Route: 047
     Dates: start: 20210514
  3. BEOVU [Suspect]
     Active Substance: BROLUCIZUMAB-DBLL
     Dosage: UNK
     Route: 065
  4. BEOVU [Suspect]
     Active Substance: BROLUCIZUMAB-DBLL
     Dosage: UNK
     Route: 065
  5. BEOVU [Suspect]
     Active Substance: BROLUCIZUMAB-DBLL
     Dosage: UNK (IN RIGHT EYE)
     Route: 047
     Dates: start: 20210515
  6. BEOVU [Suspect]
     Active Substance: BROLUCIZUMAB-DBLL
     Dosage: UNK UNK, (IN LEFT EYE, EVERY 12 WEEKS)
     Route: 047
     Dates: start: 20210628
  7. BEOVU [Suspect]
     Active Substance: BROLUCIZUMAB-DBLL
     Dosage: UNK UNK, Q3MO
     Route: 047
     Dates: start: 202110

REACTIONS (7)
  - Cerebrovascular accident [Unknown]
  - Nasopharyngitis [Unknown]
  - Visual impairment [Unknown]
  - Vitreous floaters [Unknown]
  - Visual acuity reduced [Unknown]
  - Drug effect less than expected [Unknown]
  - Drug ineffective [Unknown]

NARRATIVE: CASE EVENT DATE: 20211029
